FAERS Safety Report 17602757 (Version 3)
Quarter: 2020Q3

REPORT INFORMATION
  Report Type: Spontaneous
  Country: FR (occurrence: FR)
  Receive Date: 20200330
  Receipt Date: 20200810
  Transmission Date: 20201102
  Serious: Yes (Death, Hospitalization, Other)
  Sender: FDA-Public Use
  Company Number: FR-BAXTER-2020BAX006905

PATIENT
  Age: 20 Year
  Sex: Male

DRUGS (17)
  1. VINCRISTINE [Suspect]
     Active Substance: VINCRISTINE
     Indication: HODGKIN^S DISEASE
     Dosage: CYCLIC; CYCLICAL
     Route: 065
  2. ETOPOSIDE. [Concomitant]
     Active Substance: ETOPOSIDE
     Indication: HODGKIN^S DISEASE
     Route: 065
  3. PROPOFOL. [Suspect]
     Active Substance: PROPOFOL
     Indication: SEDATION
     Dosage: HIGH DOSE
     Route: 042
  4. AMPHOTERICIN B. [Concomitant]
     Active Substance: AMPHOTERICIN B
     Indication: FUNGAL INFECTION
     Dosage: LIPOSOMAL
     Route: 042
  5. DOXIL [Suspect]
     Active Substance: DOXORUBICIN HYDROCHLORIDE
     Indication: HODGKIN^S DISEASE
     Dosage: CYCLIC; CYCLICAL
     Route: 065
  6. AMIKACIN. [Concomitant]
     Active Substance: AMIKACIN
     Indication: PNEUMONIA
     Route: 065
  7. PROCARBAZINE [Suspect]
     Active Substance: PROCARBAZINE
     Indication: HODGKIN^S DISEASE
     Dosage: CYCLIC; CYCLICAL
     Route: 065
  8. CELLTOP [Suspect]
     Active Substance: ETOPOSIDE
     Indication: HODGKIN^S DISEASE
     Dosage: CYCLIC; CYCLICAL
     Route: 065
  9. CYCLOPHOSPHAMIDE. [Suspect]
     Active Substance: CYCLOPHOSPHAMIDE
     Indication: HODGKIN^S DISEASE
     Dosage: CYCLIC; CYCLICAL
     Route: 065
  10. BLEOMYCIN [Suspect]
     Active Substance: BLEOMYCIN SULFATE
     Indication: HODGKIN^S DISEASE
     Dosage: CYCLIC; CYCLICAL
     Route: 065
  11. HUMAN IMMUNOGLOBULIN (IMMUNOGLOBULIN HUMAN NORMAL) [Suspect]
     Active Substance: HUMAN IMMUNOGLOBULIN G
     Indication: PNEUMONIA MEASLES
     Dosage: 1000 MG/KG, QD
     Route: 042
  12. PIPERACILLIN/TAZOBACTAM [Concomitant]
     Active Substance: PIPERACILLIN SODIUM\TAZOBACTAM SODIUM
     Indication: FEBRILE NEUTROPENIA
     Route: 065
  13. CASPOFUNGIN [Concomitant]
     Active Substance: CASPOFUNGIN
     Indication: FUNGAL INFECTION
     Dosage: LIPOSOMAL
     Route: 042
  14. RIBAVIRINE [Suspect]
     Active Substance: RIBAVIRIN
     Indication: PNEUMONIA MEASLES
     Dosage: CYCLIC; CYCLICAL
     Route: 042
  15. PREDNISONE. [Suspect]
     Active Substance: PREDNISONE
     Indication: HODGKIN^S DISEASE
     Route: 065
  16. CEFTAZIDIME. [Concomitant]
     Active Substance: CEFTAZIDIME
     Indication: PNEUMONIA
     Route: 065
  17. NITRIC OXIDE. [Concomitant]
     Active Substance: NITRIC OXIDE
     Indication: ADVERSE EVENT
     Route: 055

REACTIONS (20)
  - Dyspnoea [Fatal]
  - Pseudomonas infection [Unknown]
  - Bronchopulmonary aspergillosis [Unknown]
  - Acute respiratory failure [Fatal]
  - Leukopenia [Fatal]
  - Rhinitis [Fatal]
  - Hypotension [Fatal]
  - Haemolytic anaemia [Unknown]
  - Neutropenia [Fatal]
  - Rash erythematous [Fatal]
  - Pyrexia [Fatal]
  - Respiratory failure [Fatal]
  - Conjunctivitis [Fatal]
  - Hodgkin^s disease stage IV [Unknown]
  - Lower respiratory tract inflammation [Fatal]
  - Lung infiltration [Fatal]
  - Pneumonia measles [Fatal]
  - Oropharyngeal pain [Fatal]
  - Malaise [Fatal]
  - Febrile neutropenia [Unknown]
